APPROVED DRUG PRODUCT: SYMBYAX
Active Ingredient: FLUOXETINE HYDROCHLORIDE; OLANZAPINE
Strength: EQ 50MG BASE;EQ 12MG BASE
Dosage Form/Route: CAPSULE;ORAL
Application: N021520 | Product #005
Applicant: ELI LILLY AND CO
Approved: Dec 24, 2003 | RLD: Yes | RS: No | Type: DISCN